FAERS Safety Report 9836539 (Version 1)
Quarter: 2014Q1

REPORT INFORMATION
  Report Type: Report from Study
  Country: GB (occurrence: GB)
  Receive Date: 20140123
  Receipt Date: 20140123
  Transmission Date: 20141002
  Serious: Yes (Hospitalization)
  Sender: FDA-Public Use
  Company Number: GB-ROCHE-1336542

PATIENT
  Sex: Female
  Weight: 90 kg

DRUGS (2)
  1. RITUXIMAB [Suspect]
     Indication: RHEUMATOID ARTHRITIS
     Dosage: LAST DOSE PRIOR TO SAE: 27/JUN/2013
     Route: 065
     Dates: start: 20121108
  2. METHOTREXATE [Concomitant]

REACTIONS (1)
  - Hip fracture [Recovering/Resolving]
